FAERS Safety Report 5730224-2 (Version None)
Quarter: 2008Q2

REPORT INFORMATION
  Report Type: 
  Country: None (occurrence: None)
  Receive Date: 20080505
  Receipt Date: 20080505
  Transmission Date: 20081010
  Serious: Yes (Other)
  Sender: FDA-Public Use
  Company Number: None

PATIENT
  Age: 61 Year
  Sex: Female
  Weight: 95.2554 kg

DRUGS (4)
  1. METFORMIN HCL [Suspect]
     Indication: TYPE 2 DIABETES MELLITUS
     Dosage: 250 MG (1/2 TAB) 2X/DAY WITH FOOD ORAL
     Route: 048
     Dates: start: 20080317, end: 20080320
  2. ALTACE [Concomitant]
  3. HYDROCHLOROTHIAZIDE [Concomitant]
  4. CRESTOR [Concomitant]

REACTIONS (5)
  - ANXIETY [None]
  - DIZZINESS [None]
  - DYSPNOEA [None]
  - FEELING ABNORMAL [None]
  - PHARMACEUTICAL PRODUCT COMPLAINT [None]
